FAERS Safety Report 20840644 (Version 1)
Quarter: 2022Q2

REPORT INFORMATION
  Report Type: Spontaneous
  Country: US (occurrence: US)
  Receive Date: 20220517
  Receipt Date: 20220517
  Transmission Date: 20220720
  Serious: No
  Sender: FDA-Public Use
  Company Number: US-PFIZER INC-202101638829

PATIENT
  Age: 79 Year
  Sex: Female
  Weight: 70.31 kg

DRUGS (1)
  1. RETACRIT [Suspect]
     Active Substance: EPOETIN ALFA-EPBX
     Indication: Myelodysplastic syndrome
     Dosage: UNK (SECOND SHOT)
     Dates: start: 20211118

REACTIONS (7)
  - Dizziness [Not Recovered/Not Resolved]
  - Headache [Not Recovered/Not Resolved]
  - Muscle spasms [Not Recovered/Not Resolved]
  - Diarrhoea [Unknown]
  - Nausea [Not Recovered/Not Resolved]
  - Vertigo [Unknown]
  - Balance disorder [Unknown]

NARRATIVE: CASE EVENT DATE: 20211118
